FAERS Safety Report 14047939 (Version 1)
Quarter: 2017Q4

REPORT INFORMATION
  Report Type: Spontaneous
  Country: US (occurrence: US)
  Receive Date: 20171005
  Receipt Date: 20171005
  Transmission Date: 20180321
  Serious: Yes (Hospitalization, Other)
  Sender: FDA-Public Use
  Company Number: None

PATIENT
  Age: 28 Year
  Sex: Female
  Weight: 121.5 kg

DRUGS (3)
  1. DECADRON [Suspect]
     Active Substance: DEXAMETHASONE
     Indication: OROPHARYNGEAL PAIN
     Dosage: ?          OTHER FREQUENCY:ONCE;OTHER ROUTE:INJECTED?
  2. CAMILLA BIRTH CONTROL [Concomitant]
  3. LEVAQUIN [Suspect]
     Active Substance: LEVOFLOXACIN
     Indication: OROPHARYNGEAL PAIN
     Dosage: ?          OTHER FREQUENCY:ONCE;OTHER ROUTE:INJECTED?

REACTIONS (5)
  - Loss of consciousness [None]
  - Gait inability [None]
  - Burning sensation [None]
  - Loss of personal independence in daily activities [None]
  - Blood pressure increased [None]

NARRATIVE: CASE EVENT DATE: 20170928
